FAERS Safety Report 9275135 (Version 2)
Quarter: 2013Q2

REPORT INFORMATION
  Report Type: Spontaneous
  Country: US (occurrence: US)
  Receive Date: 20130507
  Receipt Date: 20130507
  Transmission Date: 20140414
  Serious: Yes (Other)
  Sender: FDA-Public Use
  Company Number: US-009507513-0910USA02091

PATIENT
  Age: 42 Year
  Sex: Female

DRUGS (6)
  1. SINGULAIR [Suspect]
     Indication: ASTHMA
     Route: 048
  2. REBIF [Suspect]
     Indication: MULTIPLE SCLEROSIS
     Dosage: 44 ?G, TIW
     Route: 058
     Dates: start: 20021113, end: 200902
  3. COLACE [Suspect]
     Indication: CONSTIPATION
  4. VENTOLINE (ALBUTEROL SULFATE) [Suspect]
     Indication: ASTHMA
  5. IRON (UNSPECIFIED) [Concomitant]
     Indication: ANAEMIA
  6. VITAMINS (UNSPECIFIED) [Concomitant]
     Indication: ANAEMIA

REACTIONS (5)
  - Premature labour [Recovered/Resolved]
  - Uterine leiomyoma [Unknown]
  - Constipation [Unknown]
  - Exposure during pregnancy [Recovered/Resolved]
  - Condition aggravated [Unknown]
